FAERS Safety Report 11243249 (Version 1)
Quarter: 2015Q3

REPORT INFORMATION
  Report Type: Spontaneous
  Country: IT (occurrence: IT)
  Receive Date: 20150707
  Receipt Date: 20150707
  Transmission Date: 20151125
  Serious: Yes (Hospitalization)
  Sender: FDA-Public Use
  Company Number: IT-TEVA-575747ACC

PATIENT
  Age: 3 Year
  Sex: Male

DRUGS (1)
  1. CITALOPRAM HYDROBROMIDE. [Suspect]
     Active Substance: CITALOPRAM HYDROBROMIDE
     Indication: ACCIDENTAL EXPOSURE TO PRODUCT BY CHILD
     Dosage: 3 GTT TOTAL; ORAL DROPS, SOLUTION
     Route: 048
     Dates: start: 20150114, end: 20150114

REACTIONS (3)
  - Somnolence [Recovered/Resolved]
  - Vomiting [Recovered/Resolved]
  - Accidental exposure to product by child [Recovered/Resolved]

NARRATIVE: CASE EVENT DATE: 20150114
